FAERS Safety Report 8951194 (Version 1)
Quarter: 2012Q4

REPORT INFORMATION
  Report Type: 
  Country: US (occurrence: US)
  Receive Date: 20121207
  Receipt Date: 20121207
  Transmission Date: 20130627
  Serious: Yes (Other)
  Sender: FDA-Public Use
  Company Number: PHEH2012US023503

PATIENT
  Sex: Female

DRUGS (1)
  1. DIOVAN [Suspect]

REACTIONS (4)
  - Diabetes mellitus [Unknown]
  - Dyspnoea [Unknown]
  - Feeling abnormal [Unknown]
  - Chest discomfort [Unknown]
